FAERS Safety Report 4407732-X (Version None)
Quarter: 2004Q3

REPORT INFORMATION
  Report Type: 
  Country: None (occurrence: None)
  Receive Date: 20040721
  Receipt Date: 20040709
  Transmission Date: 20050211
  Serious: Yes (Life-Threatening)
  Sender: FDA-Public Use
  Company Number: US-JNJFOC-20040702919

PATIENT

DRUGS (1)
  1. DURAGESIC [Suspect]
     Dosage: SEE IMAGE
     Route: 062

REACTIONS (1)
  - CARDIO-RESPIRATORY ARREST [None]
